FAERS Safety Report 25500379 (Version 1)
Quarter: 2025Q2

REPORT INFORMATION
  Report Type: Spontaneous
  Country: US (occurrence: None)
  Receive Date: 20250628
  Receipt Date: 20250628
  Transmission Date: 20250716
  Serious: No
  Sender: FDA-CTU
  Company Number: None

PATIENT
  Age: 15 Year
  Sex: Male
  Weight: 85.95 kg

DRUGS (1)
  1. OFLOXACIN [Suspect]
     Active Substance: OFLOXACIN
     Indication: Ear pain
     Dosage: 5 DRO(S) TWICE A DAY AURICULAR (OTIC)
     Route: 001
     Dates: start: 20250625, end: 20250628

REACTIONS (5)
  - Swelling [None]
  - Erythema [None]
  - Pruritus [None]
  - Dry skin [None]
  - Skin exfoliation [None]

NARRATIVE: CASE EVENT DATE: 20250627
